FAERS Safety Report 10184694 (Version 2)
Quarter: 2015Q4

REPORT INFORMATION
  Report Type: Report from Study
  Country: US (occurrence: US)
  Receive Date: 20140521
  Receipt Date: 20151006
  Transmission Date: 20160304
  Serious: Yes (Other)
  Sender: FDA-Public Use
  Company Number: US-ROCHE-1403269

PATIENT
  Sex: Female

DRUGS (11)
  1. BRIMONIDINE [Concomitant]
     Active Substance: BRIMONIDINE TARTRATE
     Dosage: BOTH EYES
     Route: 065
  2. PRESERVISION AREDS [Concomitant]
     Active Substance: MINERALS\VITAMINS
     Route: 065
  3. LUCENTIS [Suspect]
     Active Substance: RANIBIZUMAB
     Indication: MACULAR DEGENERATION
     Dosage: RIGHT EYE
     Route: 050
  4. OMEPRAZOLE. [Concomitant]
     Active Substance: OMEPRAZOLE
     Route: 065
  5. LUMIGAN [Concomitant]
     Active Substance: BIMATOPROST
     Dosage: 1 EACH EYE DAILY
     Route: 065
  6. SYSTANE ULTRA [Concomitant]
     Active Substance: POLYETHYLENE GLYCOL 400\PROPYLENE GLYCOL
  7. SIMVASTATIN. [Concomitant]
     Active Substance: SIMVASTATIN
     Route: 065
  8. AVASTIN [Suspect]
     Active Substance: BEVACIZUMAB
     Indication: PRODUCT USED FOR UNKNOWN INDICATION
     Dosage: RIGHT EYE
     Route: 065
  9. XARELTO [Concomitant]
     Active Substance: RIVAROXABAN
     Dosage: AT DINNER
     Route: 065
  10. LISINOPRIL. [Concomitant]
     Active Substance: LISINOPRIL
     Route: 065
  11. DIGOXIN. [Concomitant]
     Active Substance: DIGOXIN
     Indication: HEART RATE IRREGULAR
     Route: 065

REACTIONS (3)
  - Visual impairment [Unknown]
  - Visual field defect [Unknown]
  - Blindness [Unknown]
